FAERS Safety Report 6265887-9 (Version None)
Quarter: 2009Q3

REPORT INFORMATION
  Report Type: 
  Country: None (occurrence: None)
  Receive Date: 20090709
  Receipt Date: 20090625
  Transmission Date: 20100115
  Serious: Yes (Hospitalization, Other)
  Sender: FDA-Public Use
  Company Number: JPI-P-007801

PATIENT
  Age: 34 Year
  Sex: Male

DRUGS (11)
  1. XYREM [Suspect]
     Indication: DRUG USE FOR UNKNOWN INDICATION
     Dosage: SEE IMAGE, ORAL
     Route: 048
     Dates: start: 20090313, end: 20090319
  2. XYREM [Suspect]
     Indication: DRUG USE FOR UNKNOWN INDICATION
     Dosage: SEE IMAGE, ORAL
     Route: 048
     Dates: start: 20090320, end: 20090331
  3. XYREM [Suspect]
     Indication: DRUG USE FOR UNKNOWN INDICATION
     Dosage: SEE IMAGE, ORAL
     Route: 048
     Dates: start: 20090401, end: 20090416
  4. XYREM [Suspect]
     Indication: DRUG USE FOR UNKNOWN INDICATION
     Dosage: SEE IMAGE, ORAL
     Route: 048
     Dates: start: 20090417, end: 20090503
  5. XYREM [Suspect]
     Indication: DRUG USE FOR UNKNOWN INDICATION
     Dosage: SEE IMAGE, ORAL
     Route: 048
     Dates: start: 20090504, end: 20090504
  6. XYREM [Suspect]
     Indication: DRUG USE FOR UNKNOWN INDICATION
     Dosage: SEE IMAGE, ORAL
     Route: 048
     Dates: start: 20090505, end: 20090505
  7. XYREM [Suspect]
     Indication: DRUG USE FOR UNKNOWN INDICATION
     Dosage: SEE IMAGE, ORAL
     Route: 048
     Dates: start: 20090510, end: 20090511
  8. XYREM [Suspect]
     Indication: DRUG USE FOR UNKNOWN INDICATION
     Dosage: SEE IMAGE, ORAL
     Route: 048
     Dates: start: 20090511, end: 20090512
  9. XYREM [Suspect]
     Indication: DRUG USE FOR UNKNOWN INDICATION
     Dosage: SEE IMAGE, ORAL
     Route: 048
     Dates: start: 20090512, end: 20090616
  10. XYREM [Suspect]
     Indication: DRUG USE FOR UNKNOWN INDICATION
     Dosage: SEE IMAGE, ORAL
     Route: 048
     Dates: start: 20090617
  11. MODAFINIL [Concomitant]

REACTIONS (1)
  - INGUINAL HERNIA [None]
